FAERS Safety Report 13220127 (Version 2)
Quarter: 2017Q1

REPORT INFORMATION
  Report Type: Spontaneous
  Country: IT (occurrence: IT)
  Receive Date: 20170210
  Receipt Date: 20170317
  Transmission Date: 20170428
  Serious: Yes (Other)
  Sender: FDA-Public Use
  Company Number: PHHY2017IT017459

PATIENT
  Age: 36 Year
  Sex: Male

DRUGS (6)
  1. REVOLADE [Suspect]
     Active Substance: ELTROMBOPAG
     Indication: PRODUCT USED FOR UNKNOWN INDICATION
     Dosage: 50 MG, UNK
     Route: 065
     Dates: start: 20160615, end: 20160621
  2. CYCLOSPORIN A [Concomitant]
     Active Substance: CYCLOSPORINE
     Indication: APLASTIC ANAEMIA
     Dosage: 100 MG, BID
     Route: 048
     Dates: start: 20160206, end: 20160905
  3. REVOLADE [Suspect]
     Active Substance: ELTROMBOPAG
     Dosage: 100 MG, UNK
     Route: 065
     Dates: start: 20160622, end: 20160713
  4. EXJADE [Suspect]
     Active Substance: DEFERASIROX
     Indication: CHELATION THERAPY
     Dosage: 7 MG/KG, QD
     Route: 065
     Dates: start: 20160804, end: 20160808
  5. EXJADE [Suspect]
     Active Substance: DEFERASIROX
     Dosage: 14 MG/KG, QD
     Route: 065
     Dates: start: 20160809, end: 20160817
  6. EXJADE [Suspect]
     Active Substance: DEFERASIROX
     Dosage: 21 MG/KG, QD
     Route: 065
     Dates: start: 20160818, end: 20160905

REACTIONS (2)
  - Hypertransaminasaemia [Recovered/Resolved]
  - Blood creatinine increased [Unknown]

NARRATIVE: CASE EVENT DATE: 20160713
